FAERS Safety Report 24035598 (Version 2)
Quarter: 2024Q3

REPORT INFORMATION
  Report Type: Spontaneous
  Country: US (occurrence: US)
  Receive Date: 20240701
  Receipt Date: 20240709
  Transmission Date: 20241017
  Serious: Yes (Other)
  Sender: JOHNSON AND JOHNSON
  Company Number: US-JNJFOC-20240665492

PATIENT
  Age: 34 Year
  Sex: Female

DRUGS (1)
  1. NEUTROGENA CLEAR PORE CLEANSER MASK [Suspect]
     Active Substance: BENZOYL PEROXIDE
     Indication: Product used for unknown indication
     Dosage: ONE TEASPOON/TABLESPOON ON FACE/CHEST
     Route: 061
     Dates: end: 202406

REACTIONS (1)
  - Anaphylactic reaction [Recovered/Resolved]

NARRATIVE: CASE EVENT DATE: 20240621
